FAERS Safety Report 6818480-0 (Version None)
Quarter: 2010Q3

REPORT INFORMATION
  Report Type: 
  Country: None (occurrence: None)
  Receive Date: 20100706
  Receipt Date: 20080926
  Transmission Date: 20110219
  Serious: No
  Sender: FDA-Public Use
  Company Number: US-PFIZER INC-2008081799

PATIENT
  Age: 54 Year
  Sex: Male
  Weight: 91.63 kg

DRUGS (2)
  1. AZITHROMYCIN [Suspect]
     Indication: OROPHARYNGEAL PAIN
     Dates: start: 20080101, end: 20080101
  2. ALDARA [Suspect]
     Indication: BASAL CELL CARCINOMA
     Route: 061
     Dates: start: 20080702, end: 20080813

REACTIONS (1)
  - RASH [None]
